FAERS Safety Report 20894155 (Version 1)
Quarter: 2022Q2

REPORT INFORMATION
  Report Type: Report from Study
  Country: US (occurrence: US)
  Receive Date: 20220531
  Receipt Date: 20220531
  Transmission Date: 20220721
  Serious: Yes (Hospitalization)
  Sender: FDA-Public Use
  Company Number: US-ASTELLAS-2021US043937

PATIENT
  Age: 61 Year
  Sex: Female

DRUGS (1)
  1. GILTERITINIB [Suspect]
     Active Substance: GILTERITINIB
     Indication: Acute myeloid leukaemia (in remission)
     Route: 048
     Dates: start: 20210715

REACTIONS (5)
  - Body temperature abnormal [Not Recovered/Not Resolved]
  - Rash [Not Recovered/Not Resolved]
  - Illness [Unknown]
  - Expired product administered [Unknown]
  - Off label use [Unknown]

NARRATIVE: CASE EVENT DATE: 20210715
